FAERS Safety Report 4305196-8 (Version None)
Quarter: 2004Q1

REPORT INFORMATION
  Report Type: 
  Country: None (occurrence: None)
  Receive Date: 20040226
  Receipt Date: 20040217
  Transmission Date: 20041129
  Serious: Yes (Other)
  Sender: FDA-Public Use
  Company Number: IN-GLAXOSMITHKLINE-B0323634A

PATIENT
  Age: 30 Year
  Sex: Female

DRUGS (1)
  1. BACTROBAN [Suspect]
     Dates: start: 20040207, end: 20040209

REACTIONS (4)
  - BLISTER [None]
  - CELLULITIS [None]
  - INFECTION [None]
  - RASH [None]
